FAERS Safety Report 11602571 (Version 2)
Quarter: 2017Q4

REPORT INFORMATION
  Report Type: Spontaneous
  Country: US (occurrence: US)
  Receive Date: 20151006
  Receipt Date: 20171018
  Transmission Date: 20180320
  Serious: No
  Sender: FDA-Public Use
  Company Number: US-AMGEN-USASP2015074392

PATIENT
  Sex: Female

DRUGS (1)
  1. PROLIA [Suspect]
     Active Substance: DENOSUMAB
     Indication: PARATHYROID DISORDER
     Dosage: UNK, Q6MO
     Route: 065
     Dates: start: 201502

REACTIONS (3)
  - Speech disorder [Unknown]
  - Off label use [Unknown]
  - Cough [Not Recovered/Not Resolved]
